FAERS Safety Report 14870014 (Version 1)
Quarter: 2018Q2

REPORT INFORMATION
  Report Type: Spontaneous
  Country: FR (occurrence: FR)
  Receive Date: 20180509
  Receipt Date: 20180509
  Transmission Date: 20180711
  Serious: Yes (Other)
  Sender: FDA-Public Use
  Company Number: FR-GUERBET-FR-20180253

PATIENT
  Age: 68 Year
  Sex: Female

DRUGS (1)
  1. OPTIJECT [Suspect]
     Active Substance: IOVERSOL
     Indication: COMPUTERISED TOMOGRAM
     Route: 042
     Dates: start: 20170209, end: 20170209

REACTIONS (3)
  - Hypersensitivity [Recovered/Resolved]
  - Toxic skin eruption [Recovered/Resolved]
  - Eosinophilia [Recovered/Resolved]

NARRATIVE: CASE EVENT DATE: 20170213
